FAERS Safety Report 11058909 (Version 1)
Quarter: 2015Q2

REPORT INFORMATION
  Report Type: Spontaneous
  Country: US (occurrence: None)
  Receive Date: 20150422
  Receipt Date: 20150422
  Transmission Date: 20150821
  Serious: Yes (Life-Threatening)
  Sender: FDA-Public Use
  Company Number: None

PATIENT
  Age: 60 Year
  Sex: Female
  Weight: 83.92 kg

DRUGS (18)
  1. FUROSEMIDE. [Concomitant]
     Active Substance: FUROSEMIDE
  2. OXYGEN. [Concomitant]
     Active Substance: OXYGEN
  3. SYNTHROID [Concomitant]
     Active Substance: LEVOTHYROXINE SODIUM
  4. VENTOLIN HFA [Concomitant]
     Active Substance: ALBUTEROL SULFATE
  5. SYMBICORT [Concomitant]
     Active Substance: BUDESONIDE\FORMOTEROL FUMARATE DIHYDRATE
  6. POTASSIUM GLUCONATE [Concomitant]
     Active Substance: POTASSIUM GLUCONATE
  7. FENOFIBRATE. [Concomitant]
     Active Substance: FENOFIBRATE
  8. MIRTAZAPINE. [Concomitant]
     Active Substance: MIRTAZAPINE
  9. TURMERIC CURCUMIN [Concomitant]
     Active Substance: TURMERIC
  10. ONGLYZA [Concomitant]
     Active Substance: SAXAGLIPTIN HYDROCHLORIDE
  11. COQ10 [Concomitant]
     Active Substance: UBIDECARENONE
  12. ASPIRIN. [Concomitant]
     Active Substance: ASPIRIN
  13. VALSARTAN. [Concomitant]
     Active Substance: VALSARTAN
  14. SPIRIVA [Concomitant]
     Active Substance: TIOTROPIUM BROMIDE MONOHYDRATE
  15. DAILY VITAMIN [Concomitant]
     Active Substance: VITAMINS
  16. METFORMIN [Suspect]
     Active Substance: METFORMIN HYDROCHLORIDE
     Indication: DIABETES MELLITUS
     Route: 048
     Dates: start: 20150406, end: 20150408
  17. SIMVASTATIN. [Concomitant]
     Active Substance: SIMVASTATIN
  18. MONTELUKAST [Concomitant]
     Active Substance: MONTELUKAST SODIUM

REACTIONS (9)
  - Chills [None]
  - Diarrhoea [None]
  - Pharyngeal oedema [None]
  - Syncope [None]
  - Vision blurred [None]
  - Incontinence [None]
  - Tremor [None]
  - Hypoaesthesia oral [None]
  - Vomiting [None]

NARRATIVE: CASE EVENT DATE: 20150406
